FAERS Safety Report 17846667 (Version 2)
Quarter: 2020Q2

REPORT INFORMATION
  Report Type: Report from Study
  Country: US (occurrence: US)
  Receive Date: 20200601
  Receipt Date: 20200617
  Transmission Date: 20200714
  Serious: Yes (Other)
  Sender: FDA-Public Use
  Company Number: US-EISAI MEDICAL RESEARCH-EC-2020-071995

PATIENT
  Age: 63 Year
  Sex: Male
  Weight: 95 kg

DRUGS (22)
  1. MULTIVITAMIN [Concomitant]
     Active Substance: VITAMINS
  2. TRAMADOL HCL-ACETAMINOPHEN [Concomitant]
  3. ALPRAZOLAM. [Concomitant]
     Active Substance: ALPRAZOLAM
  4. PEPTO-BISMOL [Concomitant]
     Active Substance: BISMUTH SUBSALICYLATE
  5. LEVOTHYROXINE SODIUM. [Concomitant]
     Active Substance: LEVOTHYROXINE SODIUM
  6. LENVIMA [Suspect]
     Active Substance: LENVATINIB
     Route: 048
     Dates: start: 202005, end: 20200524
  7. TYLENOL [Concomitant]
     Active Substance: ACETAMINOPHEN
  8. ALBUTEROL SULFATE HFA [Concomitant]
     Active Substance: ALBUTEROL SULFATE
  9. SERTRALINE HCL [Concomitant]
     Active Substance: SERTRALINE HYDROCHLORIDE
  10. LENVIMA [Suspect]
     Active Substance: LENVATINIB
     Indication: THYROID CANCER
     Route: 048
     Dates: start: 20200302, end: 2020
  11. CALCIUM + D3 [Concomitant]
     Active Substance: CALCIUM\CHOLECALCIFEROL
  12. LENVIMA [Suspect]
     Active Substance: LENVATINIB
     Route: 048
     Dates: start: 20200525
  13. LORATADINE. [Concomitant]
     Active Substance: LORATADINE
  14. CLARITIN-D NOS [Concomitant]
     Active Substance: LORATADINE\PSEUDOEPHEDRINE SULFATE
  15. CARVEDILOL. [Concomitant]
     Active Substance: CARVEDILOL
  16. FLAXSEED [Concomitant]
     Active Substance: FLAX SEED
  17. DEXAMETHASONE. [Concomitant]
     Active Substance: DEXAMETHASONE
  18. VALACYCLOVIR [Concomitant]
     Active Substance: VALACYCLOVIR HYDROCHLORIDE
  19. PROBIOTIC ACIDOPHILUS [Concomitant]
     Active Substance: LACTOBACILLUS ACIDOPHILUS
  20. VITAMIN C [Concomitant]
     Active Substance: ASCORBIC ACID
  21. FLUTICASONE PROPIONATE. [Concomitant]
     Active Substance: FLUTICASONE PROPIONATE
  22. BACTRIM [Concomitant]
     Active Substance: SULFAMETHOXAZOLE\TRIMETHOPRIM

REACTIONS (14)
  - Impaired healing [Unknown]
  - Pulmonary embolism [Unknown]
  - Peripheral swelling [Recovering/Resolving]
  - Thrombosis [Unknown]
  - Throat irritation [Not Recovered/Not Resolved]
  - Stomatitis [Not Recovered/Not Resolved]
  - Renal impairment [Unknown]
  - Blood pressure increased [Recovering/Resolving]
  - Nausea [Unknown]
  - Tongue disorder [Unknown]
  - Renal pain [Recovering/Resolving]
  - Alopecia [Unknown]
  - Arthropathy [Unknown]
  - Skin lesion [Unknown]

NARRATIVE: CASE EVENT DATE: 2020
